FAERS Safety Report 5485222-3 (Version None)
Quarter: 2007Q4

REPORT INFORMATION
  Report Type: 
  Country: None (occurrence: None)
  Receive Date: 20071015
  Receipt Date: 20071004
  Transmission Date: 20080405
  Serious: Yes (Hospitalization)
  Sender: FDA-Public Use
  Company Number: US-ELI_LILLY_AND_COMPANY-US200707005221

PATIENT
  Sex: Female
  Weight: 152.38 kg

DRUGS (5)
  1. ZYPREXA [Suspect]
     Dosage: 10 MG, UNK
     Dates: start: 20021205, end: 20030323
  2. WELLBUTRIN [Concomitant]
     Dosage: UNK, UNK
     Dates: start: 20020611, end: 20030512
  3. CELEXA [Concomitant]
     Dates: start: 20021022, end: 20030311
  4. PREDNISOLONE [Concomitant]
     Dates: start: 20030203
  5. SEROQUEL [Concomitant]
     Dates: start: 20030418, end: 20030503

REACTIONS (4)
  - DIABETES MELLITUS [None]
  - GALLBLADDER DISORDER [None]
  - HYPOGLYCAEMIA [None]
  - WEIGHT INCREASED [None]
